FAERS Safety Report 25074886 (Version 2)
Quarter: 2025Q1

REPORT INFORMATION
  Report Type: Spontaneous
  Country: US (occurrence: US)
  Receive Date: 20250313
  Receipt Date: 20250317
  Transmission Date: 20250409
  Serious: Yes (Life-Threatening, Hospitalization)
  Sender: PFIZER
  Company Number: US-PFIZER INC-202500054903

PATIENT
  Age: 60 Year
  Sex: Female

DRUGS (22)
  1. IBRANCE [Suspect]
     Active Substance: PALBOCICLIB
     Indication: Endometrial cancer
     Dates: start: 20250211
  2. ITOVEBI [Suspect]
     Active Substance: INAVOLISIB
     Indication: Endometrial cancer
     Dates: start: 20250211
  3. ITOVEBI [Suspect]
     Active Substance: INAVOLISIB
     Dates: start: 20250226
  4. AMLODIPINE [Concomitant]
     Active Substance: AMLODIPINE BESYLATE
  5. ASPIRIN [Concomitant]
     Active Substance: ASPIRIN
  6. ATORVASTATIN [Concomitant]
     Active Substance: ATORVASTATIN
  7. BASAGLAR [Concomitant]
     Active Substance: INSULIN GLARGINE
  8. CALCIUM\VITAMIN D [Concomitant]
     Active Substance: CALCIUM\VITAMIN D
  9. PROCHLORPERAZINE EDISYLATE [Concomitant]
     Active Substance: PROCHLORPERAZINE EDISYLATE
  10. CYMBALTA [Concomitant]
     Active Substance: DULOXETINE HYDROCHLORIDE
  11. DEXAMETHASONE [Concomitant]
     Active Substance: DEXAMETHASONE
  12. DITROPAN [Concomitant]
     Active Substance: OXYBUTYNIN CHLORIDE
  13. ENALAPRIL [Concomitant]
     Active Substance: ENALAPRIL
  14. IRON [Concomitant]
     Active Substance: IRON
  15. JANUVIA [Concomitant]
     Active Substance: SITAGLIPTIN PHOSPHATE
  16. MAGNESIUM [Concomitant]
     Active Substance: MAGNESIUM
  17. METFORMIN [Concomitant]
     Active Substance: METFORMIN HYDROCHLORIDE
  18. MIRALAX [Concomitant]
     Active Substance: POLYETHYLENE GLYCOL 3350
  19. MORPHINE [Concomitant]
     Active Substance: MORPHINE
  20. OMEPRAZOLE [Concomitant]
     Active Substance: OMEPRAZOLE
  21. VITAMIN D NOS [Concomitant]
     Active Substance: CHOLECALCIFEROL\ERGOCALCIFEROL
  22. ONDANSETRON [Concomitant]
     Active Substance: ONDANSETRON

REACTIONS (5)
  - Diabetic ketoacidosis [Unknown]
  - Hyperglycaemia [Unknown]
  - Fall [Unknown]
  - Metabolic acidosis [Unknown]
  - Off label use [Unknown]

NARRATIVE: CASE EVENT DATE: 20250309
